FAERS Safety Report 17952641 (Version 1)
Quarter: 2020Q2

REPORT INFORMATION
  Report Type: Spontaneous
  Country: DE (occurrence: DE)
  Receive Date: 20200626
  Receipt Date: 20200626
  Transmission Date: 20200714
  Serious: Yes (Other)
  Sender: FDA-Public Use
  Company Number: DE-US-PROVELL PHARMACEUTICALS LLC-E2B_90078238

PATIENT
  Age: 57 Year
  Sex: Female

DRUGS (1)
  1. EUTHYROX [Suspect]
     Active Substance: LEVOTHYROXINE SODIUM
     Indication: AUTOIMMUNE THYROIDITIS

REACTIONS (11)
  - Asthenia [Unknown]
  - Constipation [Unknown]
  - Weight increased [Unknown]
  - Dementia [Unknown]
  - Palpitations [Unknown]
  - Depressed mood [Unknown]
  - Myalgia [Unknown]
  - Madarosis [Unknown]
  - Hypotrichosis [Unknown]
  - Alopecia [Unknown]
  - Feeling cold [Unknown]
